FAERS Safety Report 22522262 (Version 1)
Quarter: 2023Q2

REPORT INFORMATION
  Report Type: Spontaneous
  Country: KR (occurrence: KR)
  Receive Date: 20230605
  Receipt Date: 20230605
  Transmission Date: 20230722
  Serious: Yes (Hospitalization, Other)
  Sender: FDA-Public Use
  Company Number: KR-ORGANON-O2305KOR003179

PATIENT
  Age: 80 Year
  Sex: Male
  Weight: 78.8 kg

DRUGS (6)
  1. COZAAR [Suspect]
     Active Substance: LOSARTAN POTASSIUM
     Indication: Essential hypertension
     Dosage: 50 MILLIGRAM; FORMULATION: FILM COATED TABLET
     Route: 048
     Dates: start: 20141223
  2. TENOFOVIR DISOPROXIL FUMARATE [Suspect]
     Active Substance: TENOFOVIR DISOPROXIL FUMARATE
     Indication: Hepatitis viral
     Dosage: 1 FORMULATION, 1 DAY
     Route: 048
     Dates: start: 20171012, end: 20180405
  3. FUROSEMIDE [Concomitant]
     Active Substance: FUROSEMIDE
     Indication: Pericarditis constrictive
     Dosage: 20 MILLIGRAM; FORMULATION: UNCOATED TABLET
     Route: 048
     Dates: start: 20170901
  4. AMBROXOL ACEFYLLINATE [Concomitant]
     Active Substance: AMBROXOL ACEFYLLINATE
     Indication: Chronic obstructive pulmonary disease
     Dosage: 200 MILLIGRAM; FORMULATION: HARD CAPSULE POWDER
     Route: 048
     Dates: start: 20170901
  5. MONTELUKAST SODIUM [Concomitant]
     Active Substance: MONTELUKAST SODIUM
     Indication: Chronic obstructive pulmonary disease
     Dosage: 10 MILLIGRAM
     Route: 048
     Dates: start: 20170901
  6. MAGNESIUM OXIDE [Concomitant]
     Active Substance: MAGNESIUM OXIDE
     Indication: Prophylaxis
     Dosage: 250 MILLIGRAM; FORMULATION: UNCOATED TABLET
     Route: 048
     Dates: start: 20170901

REACTIONS (1)
  - Pericarditis constrictive [Recovering/Resolving]

NARRATIVE: CASE EVENT DATE: 20171201
